FAERS Safety Report 21285883 (Version 1)
Quarter: 2022Q3

REPORT INFORMATION
  Report Type: Spontaneous
  Country: US (occurrence: US)
  Receive Date: 20220902
  Receipt Date: 20220902
  Transmission Date: 20221026
  Serious: No
  Sender: FDA-Public Use
  Company Number: US-AMNEAL PHARMACEUTICALS-2022-AMRX-02130

PATIENT

DRUGS (1)
  1. AZITHROMYCIN [Suspect]
     Active Substance: AZITHROMYCIN
     Indication: Product used for unknown indication
     Dosage: TWO TABLETS ON DAY ONE AND ONE TABLET ON DAY TWO
     Route: 065

REACTIONS (2)
  - Oropharyngeal pain [Unknown]
  - COVID-19 [Unknown]
